FAERS Safety Report 10449522 (Version 2)
Quarter: 2014Q3

REPORT INFORMATION
  Report Type: Spontaneous
  Country: ES (occurrence: ES)
  Receive Date: 20140912
  Receipt Date: 20140912
  Transmission Date: 20150326
  Serious: Yes (Other)
  Sender: FDA-Public Use
  Company Number: ES-ABBVIE-14P-144-1280171-00

PATIENT
  Age: 66 Year
  Sex: Male

DRUGS (2)
  1. HUMIRA [Suspect]
     Active Substance: ADALIMUMAB
     Indication: PSORIASIS
     Dates: start: 201101, end: 20140620
  2. HUMIRA [Suspect]
     Active Substance: ADALIMUMAB
     Indication: PSORIASIS

REACTIONS (18)
  - Chronic cutaneous lupus erythematosus [Recovering/Resolving]
  - Skin lesion [Not Recovered/Not Resolved]
  - Haematocrit decreased [Unknown]
  - Lymphocyte count decreased [Unknown]
  - Alpha 2 globulin decreased [Unknown]
  - Blood immunoglobulin G increased [Unknown]
  - Beta 2 microglobulin increased [Unknown]
  - Alpha 1 globulin decreased [Unknown]
  - Blood albumin decreased [Unknown]
  - Blood immunoglobulin A increased [Unknown]
  - Red blood cell count decreased [Unknown]
  - Neutrophil count decreased [Unknown]
  - C-reactive protein increased [Unknown]
  - Haemoglobin decreased [Unknown]
  - Red blood cell sedimentation rate increased [Unknown]
  - Blood immunoglobulin M increased [Unknown]
  - Albumin globulin ratio decreased [Unknown]
  - Immunoglobulins increased [Unknown]

NARRATIVE: CASE EVENT DATE: 2014
